FAERS Safety Report 8542323-0 (Version None)
Quarter: 2012Q3

REPORT INFORMATION
  Report Type: 
  Country: None (occurrence: None)
  Receive Date: 20120726
  Receipt Date: 20111208
  Transmission Date: 20120928
  Serious: No
  Sender: FDA-Public Use
  Company Number: US-ASTRAZENECA-2011SE60998

PATIENT
  Age: 57 Year
  Sex: Female

DRUGS (4)
  1. SEROQUEL [Suspect]
     Route: 048
  2. SEROQUEL [Suspect]
     Route: 048
  3. SEROQUEL [Suspect]
     Dosage: IN THE MORNING
     Route: 048
  4. SEROQUEL [Suspect]
     Indication: BIPOLAR DISORDER
     Route: 048

REACTIONS (8)
  - BLOOD CHOLESTEROL INCREASED [None]
  - SOMNOLENCE [None]
  - ABNORMAL DREAMS [None]
  - MOOD SWINGS [None]
  - LETHARGY [None]
  - BINGE DRINKING [None]
  - MENTAL DISORDER [None]
  - FEELING ABNORMAL [None]
